FAERS Safety Report 20816414 (Version 10)
Quarter: 2022Q4

REPORT INFORMATION
  Report Type: Spontaneous
  Country: CA (occurrence: CA)
  Receive Date: 20220512
  Receipt Date: 20221104
  Transmission Date: 20230112
  Serious: Yes (Hospitalization, Other)
  Sender: FDA-Public Use
  Company Number: CA-CELLTRION INC.-2021CA019153

PATIENT

DRUGS (16)
  1. INFLECTRA [Suspect]
     Active Substance: INFLIXIMAB-DYYB
     Indication: Crohn^s disease
     Dosage: 500 MG, INDUCTION EVERY (Q) 0 , 2, 6 WEEK THEN EVERY 4 WEEKS
     Route: 042
  2. INFLECTRA [Suspect]
     Active Substance: INFLIXIMAB-DYYB
     Dosage: 500 MG, INDUCTION EVERY (Q) 0 , 2, 6 WEEK THEN EVERY 4 WEEKS
     Route: 042
     Dates: start: 20220314
  3. INFLECTRA [Suspect]
     Active Substance: INFLIXIMAB-DYYB
     Dosage: 500 MG, INDUCTION EVERY (Q) 0 , 2, 6 WEEK THEN EVERY 4 WEEKS
     Route: 042
     Dates: start: 20220328
  4. INFLECTRA [Suspect]
     Active Substance: INFLIXIMAB-DYYB
     Dosage: 500 MG, INDUCTION EVERY (Q) 0 , 2, 6 WEEK THEN EVERY 4 WEEKS
     Route: 042
     Dates: start: 20220811
  5. INFLECTRA [Suspect]
     Active Substance: INFLIXIMAB-DYYB
     Dosage: 500 MG, INDUCTION EVERY (Q) 0 , 2, 6 WEEK THEN EVERY 4 WEEKS
     Route: 042
     Dates: start: 20220913
  6. ACETAMINOPHEN [Concomitant]
     Active Substance: ACETAMINOPHEN
     Indication: Premedication
     Dosage: UNK (AT HOME)
     Dates: start: 20220913, end: 20220913
  7. AMOXICILLIN [Concomitant]
     Active Substance: AMOXICILLIN
     Dosage: 1 DF, 3X/DAY, DOSAGE UNKNOWN
     Route: 048
     Dates: start: 20220905
  8. CALCIUM [Concomitant]
     Active Substance: CALCIUM
     Dosage: 1 DF, 1X/DAY, DOSAGE UNKNOWN
     Route: 048
  9. DIPHENHYDRAMINE [Concomitant]
     Active Substance: DIPHENHYDRAMINE
     Indication: Premedication
     Dosage: 25 MG
     Dates: start: 20220913, end: 20220913
  10. CEFIXIME [Concomitant]
     Active Substance: CEFIXIME
     Dosage: 1 DF, 1/2 TAB AT BEDTIME
     Route: 048
     Dates: start: 20220905
  11. HYDROMORPHONE [Concomitant]
     Active Substance: HYDROMORPHONE
     Dosage: 2 MG
     Route: 048
     Dates: start: 20220905
  12. IRON [Concomitant]
     Active Substance: IRON
     Dosage: 1 DF, 2X/DAY (DOSAGE UNKNOWN)
     Route: 048
  13. LORAZEPAM [Concomitant]
     Active Substance: LORAZEPAM
     Dosage: 1 DF, 1 TAB AT BEDTIME
     Route: 048
     Dates: start: 20220905
  14. PREDNISONE [Concomitant]
     Active Substance: PREDNISONE
     Dosage: 40 MG
     Route: 065
  15. PREDNISONE [Concomitant]
     Active Substance: PREDNISONE
     Dosage: 40 MG, FREQUENCY NOT AVAILABLE - IN DECREASING DOSES
     Route: 065
  16. PREDNISONE [Concomitant]
     Active Substance: PREDNISONE
     Dosage: 20 MG
     Route: 048

REACTIONS (19)
  - Fall [Recovered/Resolved]
  - Foot operation [Recovered/Resolved]
  - Spinal fracture [Unknown]
  - Localised infection [Unknown]
  - Tenoplasty [Unknown]
  - Fistula [Unknown]
  - Weight increased [Unknown]
  - Weight decreased [Unknown]
  - Infusion site extravasation [Unknown]
  - Poor venous access [Unknown]
  - Arthralgia [Unknown]
  - Back pain [Not Recovered/Not Resolved]
  - Heart rate increased [Not Recovered/Not Resolved]
  - Dehydration [Unknown]
  - Anal fissure [Unknown]
  - Off label use [Unknown]
  - Off label use [Unknown]
  - Inappropriate schedule of product administration [Unknown]
  - Malaise [Not Recovered/Not Resolved]

NARRATIVE: CASE EVENT DATE: 20220101
